FAERS Safety Report 6255820-8 (Version None)
Quarter: 2009Q3

REPORT INFORMATION
  Report Type: 
  Country: None (occurrence: None)
  Receive Date: 20090703
  Receipt Date: 20090624
  Transmission Date: 20100115
  Serious: Yes (Other)
  Sender: FDA-Public Use
  Company Number: US-PFIZER INC-2009216235

PATIENT
  Sex: Female
  Weight: 56 kg

DRUGS (3)
  1. DEPO-PROVERA [Suspect]
     Indication: CONTRACEPTION
     Dosage: 150 MG, UNK
     Route: 030
     Dates: start: 20080610
  2. LEXAPRO [Concomitant]
     Dosage: 5 MG, UNK
  3. LITHIUM CARBONATE [Concomitant]
     Dosage: 500 MG, 1X/DAY

REACTIONS (3)
  - ABORTION MISSED [None]
  - DRUG INEFFECTIVE [None]
  - UNINTENDED PREGNANCY [None]
